FAERS Safety Report 5220961-0 (Version None)
Quarter: 2007Q1

REPORT INFORMATION
  Report Type: 
  Country: None (occurrence: None)
  Receive Date: 20070124
  Receipt Date: 20070111
  Transmission Date: 20070707
  Serious: Yes (Death)
  Sender: FDA-Public Use
  Company Number: 2006JP005361

PATIENT
  Age: 71 Year
  Sex: Female
  Weight: 47 kg

DRUGS (15)
  1. FUNGUARD(MICAFUNGIN) INJECTION [Suspect]
     Indication: SYSTEMIC CANDIDA
     Dosage: 150 MG, IV DRIP; SEE IMAGE
     Route: 041
     Dates: start: 20060820, end: 20060822
  2. FUNGUARD(MICAFUNGIN) INJECTION [Suspect]
     Indication: SYSTEMIC CANDIDA
     Dosage: 150 MG, IV DRIP; SEE IMAGE
     Route: 041
     Dates: start: 20060823, end: 20060828
  3. FUNGUARD(MICAFUNGIN) INJECTION [Suspect]
     Indication: SYSTEMIC CANDIDA
     Dosage: 150 MG, IV DRIP; SEE IMAGE
     Route: 041
     Dates: start: 20060829, end: 20060912
  4. ZYVOX [Suspect]
     Indication: DRUG USE FOR UNKNOWN INDICATION
     Dosage: 1200 MG
     Dates: start: 20060828, end: 20060904
  5. DIFLUCAN [Concomitant]
  6. VFEND [Concomitant]
  7. MEROPEN (MEROPENEM) [Concomitant]
  8. TARGOCID [Concomitant]
  9. CEFTAZIDIME [Concomitant]
  10. SULFAMETHOXAZOLE + TRIMETHOPRIM [Concomitant]
  11. EXACIN (ISEPAMICIN SULFATE) [Concomitant]
  12. HABEKACIN (ARBEKACIN) [Concomitant]
  13. TIENAM (IMIPENEM, CILASTATIN SODIUM) [Concomitant]
  14. NEUTROGIN (LENOGRASTIM) [Concomitant]
  15. VENILON (IMMUNOGLOBIN HUMAN NORMAL) [Concomitant]

REACTIONS (6)
  - CONDITION AGGRAVATED [None]
  - DRUG INEFFECTIVE [None]
  - HEPATIC FUNCTION ABNORMAL [None]
  - INFECTION [None]
  - RENAL IMPAIRMENT [None]
  - SEPSIS [None]
